FAERS Safety Report 6715877-4 (Version None)
Quarter: 2010Q2

REPORT INFORMATION
  Report Type: 
  Country: None (occurrence: None)
  Receive Date: 20100506
  Receipt Date: 20100506
  Transmission Date: 20101027
  Serious: Yes (Hospitalization)
  Sender: FDA-Public Use
  Company Number: None

PATIENT
  Sex: Female
  Weight: 69 kg

DRUGS (2)
  1. TAXOL [Suspect]
     Dosage: 80 MG
  2. CARBOPLATIN [Suspect]
     Dosage: 217 MG

REACTIONS (1)
  - ATRIAL FIBRILLATION [None]
